FAERS Safety Report 6657040-1 (Version None)
Quarter: 2010Q1

REPORT INFORMATION
  Report Type: 
  Country: None (occurrence: None)
  Receive Date: 20100330
  Receipt Date: 20091218
  Transmission Date: 20100710
  Serious: Yes (Hospitalization)
  Sender: FDA-Public Use
  Company Number: IT-JNJFOC-20090504383

PATIENT
  Age: 70 Year
  Sex: Female

DRUGS (1)
  1. LEVOXACIN [Suspect]
     Indication: BRONCHOPNEUMONIA
     Route: 065

REACTIONS (4)
  - GAMMA-GLUTAMYLTRANSFERASE INCREASED [None]
  - MALAISE [None]
  - RASH [None]
  - THROMBOCYTOPENIA [None]
